FAERS Safety Report 8860717 (Version 1)
Quarter: 2012Q4

REPORT INFORMATION
  Report Type: 
  Country: US (occurrence: US)
  Receive Date: 20121025
  Receipt Date: 20121025
  Transmission Date: 20130627
  Serious: No
  Sender: FDA-Public Use
  Company Number: US-ASTRAZENECA-2012SE80857

PATIENT
  Sex: Female

DRUGS (3)
  1. ZOMIG [Suspect]
     Indication: MIGRAINE
     Route: 065
  2. ZOMIG [Suspect]
     Indication: MIGRAINE
     Dosage: ZMP
     Route: 048
  3. PHENERGIN [Concomitant]

REACTIONS (2)
  - Migraine [Recovered/Resolved]
  - Intentional drug misuse [Unknown]
